FAERS Safety Report 7490762-1 (Version None)
Quarter: 2011Q2

REPORT INFORMATION
  Report Type: 
  Country: None (occurrence: None)
  Receive Date: 20110519
  Receipt Date: 20110505
  Transmission Date: 20111010
  Serious: Yes (Other)
  Sender: FDA-Public Use
  Company Number: FR-BAYER-2011-025770

PATIENT
  Age: 22 Year
  Sex: Female

DRUGS (1)
  1. YAZ [Suspect]
     Indication: PRODUCT USED FOR UNKNOWN INDICATION
     Dosage: 1 DF, QD
     Route: 048
     Dates: start: 20110215, end: 20110218

REACTIONS (6)
  - NIGHTMARE [None]
  - HEADACHE [None]
  - NAUSEA [None]
  - AFFECT LABILITY [None]
  - HYPOAESTHESIA [None]
  - VERTIGO [None]
